FAERS Safety Report 9223845 (Version 1)
Quarter: 2013Q2

REPORT INFORMATION
  Report Type: Spontaneous
  Country: US (occurrence: US)
  Receive Date: 20130411
  Receipt Date: 20130411
  Transmission Date: 20140414
  Serious: Yes (Death, Life-Threatening, Hospitalization, Other)
  Sender: FDA-Public Use
  Company Number: US-AMGEN-USASP2013024282

PATIENT
  Age: 71 Year
  Sex: Female

DRUGS (2)
  1. ENBREL [Suspect]
     Indication: RHEUMATOID ARTHRITIS
     Dosage: UNK
     Dates: start: 20100727, end: 2012
  2. METHOTREXATE [Suspect]
     Dosage: UNK

REACTIONS (8)
  - Death [Fatal]
  - Dyspnoea [Recovered/Resolved]
  - Resuscitation [Recovered/Resolved]
  - Coronary artery occlusion [Recovered/Resolved]
  - Pulmonary fibrosis [Recovered/Resolved]
  - Gastric ulcer [Recovered/Resolved]
  - Hypertension [Recovered/Resolved]
  - Fungal oesophagitis [Recovered/Resolved]
